FAERS Safety Report 18565030 (Version 1)
Quarter: 2020Q4

REPORT INFORMATION
  Report Type: Report from Study
  Country: US (occurrence: US)
  Receive Date: 20201201
  Receipt Date: 20201201
  Transmission Date: 20210114
  Serious: Yes (Hospitalization)
  Sender: FDA-Public Use
  Company Number: US-MYLANLABS-2020M1098054

PATIENT
  Age: 63 Year
  Sex: Male

DRUGS (13)
  1. VEDOLIZUMAB [Suspect]
     Active Substance: VEDOLIZUMAB
     Indication: CONDITION AGGRAVATED
  2. INFLIXIMAB [Suspect]
     Active Substance: INFLIXIMAB
     Indication: COLITIS ULCERATIVE
     Route: 065
  3. MESALAZINE [Suspect]
     Active Substance: MESALAMINE
     Indication: COLITIS ULCERATIVE
     Route: 065
  4. INTERLEUKIN-2 [Suspect]
     Active Substance: ALDESLEUKIN
     Indication: COLITIS ULCERATIVE
     Dosage: UNK, QD
     Route: 058
  5. PREDNISONE. [Suspect]
     Active Substance: PREDNISONE
     Indication: COLITIS ULCERATIVE
     Dosage: RECEIVED SEVERAL COURSES; LAST..
     Route: 065
  6. PREDNISONE. [Suspect]
     Active Substance: PREDNISONE
     Indication: CONDITION AGGRAVATED
     Dosage: RE-STARTED WITH TAPERING AFTER...
     Route: 065
  7. TOFACITINIB [Suspect]
     Active Substance: TOFACITINIB
     Indication: COLITIS ULCERATIVE
     Route: 065
  8. TOFACITINIB [Suspect]
     Active Substance: TOFACITINIB
     Indication: CONDITION AGGRAVATED
  9. INTERLEUKIN-2 [Suspect]
     Active Substance: ALDESLEUKIN
     Indication: CONDITION AGGRAVATED
  10. BUDESONIDE. [Suspect]
     Active Substance: BUDESONIDE
     Indication: COLITIS ULCERATIVE
     Dosage: BUDESONIDE MMX
     Route: 065
  11. VEDOLIZUMAB [Suspect]
     Active Substance: VEDOLIZUMAB
     Indication: COLITIS ULCERATIVE
     Dosage: FREQUENCY INCREASED DUE TO LOW...
     Route: 065
  12. METHOTREXATE. [Concomitant]
     Active Substance: METHOTREXATE
     Indication: COLITIS ULCERATIVE
     Route: 048
  13. SHINGRIX [Concomitant]
     Active Substance: RECOMBINANT VARICELLA ZOSTER VIRUS (VZV) GLYCOPROTEIN E
     Indication: IMMUNISATION
     Route: 065

REACTIONS (1)
  - Treatment failure [Unknown]
